FAERS Safety Report 9231535 (Version 3)
Quarter: 2013Q2

REPORT INFORMATION
  Report Type: Report from Study
  Country: IT (occurrence: IT)
  Receive Date: 20130415
  Receipt Date: 20130524
  Transmission Date: 20140414
  Serious: Yes (Death, Hospitalization)
  Sender: FDA-Public Use
  Company Number: IT-GLAXOSMITHKLINE-B0883330A

PATIENT
  Age: 81 Year
  Sex: Male
  Weight: 75 kg

DRUGS (4)
  1. MELPHALAN [Suspect]
     Indication: PLASMA CELL MYELOMA
     Dates: start: 20080122, end: 20081221
  2. LENALIDOMIDE [Suspect]
     Indication: PLASMA CELL MYELOMA
     Route: 048
     Dates: start: 20080122, end: 20090107
  3. PREDNISONE [Suspect]
     Indication: PLASMA CELL MYELOMA
     Route: 048
     Dates: start: 20080122, end: 20081221
  4. PLACEBO [Suspect]
     Indication: PLASMA CELL MYELOMA
     Dates: start: 20090115, end: 20090204

REACTIONS (3)
  - Metastases to biliary tract [Fatal]
  - Malignant neoplasm of unknown primary site [Fatal]
  - Metastases to liver [Fatal]
